FAERS Safety Report 17898826 (Version 3)
Quarter: 2020Q3

REPORT INFORMATION
  Report Type: Report from Study
  Country: US (occurrence: US)
  Receive Date: 20200616
  Receipt Date: 20200724
  Transmission Date: 20201103
  Serious: No
  Sender: FDA-Public Use
  Company Number: US-009507513-2006USA003117

PATIENT
  Age: 21 Year
  Sex: Female
  Weight: 66.67 kg

DRUGS (2)
  1. IMPLANON [Suspect]
     Active Substance: ETONOGESTREL
     Indication: CONTRACEPTION
     Dosage: 1 IMPLANT, STRENGTH:68MG
     Route: 059
     Dates: start: 20170223, end: 20200428
  2. NEXPLANON [Suspect]
     Active Substance: ETONOGESTREL
     Indication: CONTRACEPTION
     Dosage: 1 IMPLANT
     Route: 059
     Dates: start: 20200428

REACTIONS (4)
  - Incorrect product administration duration [Unknown]
  - Implant site pain [Recovered/Resolved]
  - Implant site nodule [Recovered/Resolved]
  - Pain in extremity [Unknown]

NARRATIVE: CASE EVENT DATE: 20200224
